FAERS Safety Report 14419832 (Version 1)
Quarter: 2018Q1

REPORT INFORMATION
  Report Type: Spontaneous
  Country: US (occurrence: US)
  Receive Date: 20180121
  Receipt Date: 20180121
  Transmission Date: 20180509
  Serious: Yes (Hospitalization)
  Sender: FDA-Public Use
  Company Number: None

PATIENT
  Sex: Female
  Weight: 10.35 kg

DRUGS (1)
  1. COUGH AND COLD KIDS RELIEF (HOMEOPATHICS) [Suspect]
     Active Substance: HOMEOPATHICS
     Indication: COUGH
     Route: 048

REACTIONS (2)
  - Asthma [None]
  - Dyspnoea [None]
